FAERS Safety Report 17223185 (Version 1)
Quarter: 2020Q1

REPORT INFORMATION
  Report Type: Spontaneous
  Country: CA (occurrence: CA)
  Receive Date: 20200102
  Receipt Date: 20200102
  Transmission Date: 20200409
  Serious: Yes (Other)
  Sender: FDA-Public Use
  Company Number: CA-ROCHE-2506989

PATIENT
  Age: 71 Year
  Sex: Female

DRUGS (10)
  1. FOSAMAX [Concomitant]
     Active Substance: ALENDRONATE SODIUM
     Route: 065
  2. METHYLPREDNISOLONE. [Concomitant]
     Active Substance: METHYLPREDNISOLONE
     Route: 042
  3. ACTEMRA [Suspect]
     Active Substance: TOCILIZUMAB
     Indication: RHEUMATOID ARTHRITIS
     Route: 058
  4. PANTOPRAZOLE MAGNESIUM [Concomitant]
     Active Substance: PANTOPRAZOLE MAGNESIUM
  5. ACETAMINOPHEN. [Concomitant]
     Active Substance: ACETAMINOPHEN
     Route: 048
  6. FOLIC ACID. [Concomitant]
     Active Substance: FOLIC ACID
  7. METHOTREXATE. [Concomitant]
     Active Substance: METHOTREXATE
  8. DIPHENHYDRAMINE HYDROCHLORIDE. [Concomitant]
     Active Substance: DIPHENHYDRAMINE HYDROCHLORIDE
     Route: 048
  9. BACITRACIN ZINC;POLYMYXIN B SULFATE [Suspect]
     Active Substance: BACITRACIN ZINC\POLYMYXIN B SULFATE
     Indication: ORAL HERPES
     Route: 065
  10. ATROVENT [Concomitant]
     Active Substance: IPRATROPIUM BROMIDE

REACTIONS (5)
  - Oral herpes [Not Recovered/Not Resolved]
  - Rash [Not Recovered/Not Resolved]
  - Drug hypersensitivity [Not Recovered/Not Resolved]
  - Swelling face [Not Recovered/Not Resolved]
  - Blood pressure increased [Not Recovered/Not Resolved]
